FAERS Safety Report 14000839 (Version 2)
Quarter: 2017Q4

REPORT INFORMATION
  Report Type: Spontaneous
  Country: FR (occurrence: FR)
  Receive Date: 20170922
  Receipt Date: 20171003
  Transmission Date: 20180321
  Serious: Yes (Hospitalization)
  Sender: FDA-Public Use
  Company Number: FR-MERCK KGAA-2027351

PATIENT
  Age: 75 Year
  Sex: Male

DRUGS (13)
  1. LASILIX [Concomitant]
     Active Substance: FUROSEMIDE
     Route: 048
  2. STAGID(METFORMIN EMBONATE) [Concomitant]
     Route: 048
  3. PERINDOPRIL(PERINDOPRIL) [Concomitant]
     Route: 048
  4. KARDEGIC(ACETYLSALICYLATE LYSINE) [Concomitant]
     Route: 048
  5. RABEPRAZOLE(RABEPRAZOLE) [Concomitant]
     Route: 048
  6. THIAMINE HYDROCHLORIDE. [Concomitant]
     Active Substance: THIAMINE HYDROCHLORIDE
     Route: 048
  7. UVEDOSE(COLECALCIFEROL) [Concomitant]
     Route: 048
  8. NOVOTHYROX [Suspect]
     Active Substance: LEVOTHYROXINE SODIUM
     Indication: THYROIDECTOMY
     Route: 048
  9. CRESTOR [Concomitant]
     Active Substance: ROSUVASTATIN CALCIUM
     Route: 048
  10. CALCIUM CARBONATE. [Concomitant]
     Active Substance: CALCIUM CARBONATE
     Route: 048
  11. PREGABALIN. [Concomitant]
     Active Substance: PREGABALIN
     Route: 048
  12. POTASSIUM CHLORIDE. [Concomitant]
     Active Substance: POTASSIUM CHLORIDE
     Route: 048
  13. XARELTO [Concomitant]
     Active Substance: RIVAROXABAN
     Route: 048

REACTIONS (9)
  - Abdominal pain [Not Recovered/Not Resolved]
  - Decreased appetite [Not Recovered/Not Resolved]
  - Blood thyroid stimulating hormone normal [Recovered/Resolved]
  - Weight increased [Not Recovered/Not Resolved]
  - Fatigue [Not Recovered/Not Resolved]
  - Vertigo [Recovered/Resolved]
  - Arrhythmia [Not Recovered/Not Resolved]
  - Alopecia [Not Recovered/Not Resolved]
  - Headache [Not Recovered/Not Resolved]

NARRATIVE: CASE EVENT DATE: 201611
